FAERS Safety Report 5519000-3 (Version None)
Quarter: 2007Q4

REPORT INFORMATION
  Report Type: 
  Country: None (occurrence: None)
  Receive Date: 20071114
  Receipt Date: 20071114
  Transmission Date: 20080405
  Serious: Yes (Other)
  Sender: FDA-Public Use
  Company Number: None

PATIENT
  Sex: Female

DRUGS (2)
  1. INFERGEN [Suspect]
     Indication: HEPATITIS C
     Dosage: INJECT 15MCG-0.5ML- DAILY SQ
     Route: 058
  2. RIBAVIRIN [Suspect]
     Indication: HEPATITIS C
     Dosage: TAKE 600MG@AM AND 400MG @PM DAILY PO
     Route: 048

REACTIONS (2)
  - DRUG INTOLERANCE [None]
  - MENTAL STATUS CHANGES [None]
